FAERS Safety Report 9747100 (Version 1)
Quarter: 2013Q4

REPORT INFORMATION
  Report Type: Report from Study
  Country: US (occurrence: US)
  Receive Date: 20131211
  Receipt Date: 20131211
  Transmission Date: 20140711
  Serious: Yes (Other)
  Sender: FDA-Public Use
  Company Number: PHEH2013US025524

PATIENT
  Sex: Male

DRUGS (16)
  1. TASIGNA [Suspect]
     Indication: CHRONIC MYELOID LEUKAEMIA
     Dosage: 150 MG, BID
  2. ISOSORBIDE MONONITRATE [Concomitant]
     Dosage: 30 MG, QD
  3. AMITIZA [Concomitant]
     Dosage: 24 UG, QD
  4. TIZANIDINE [Concomitant]
     Dosage: 4 MG, QD
  5. HYDROXYZINE [Concomitant]
     Dosage: 50 MG, QD
  6. HYDROMORPHONE [Concomitant]
     Dosage: 4 MG, Q6H
  7. METOPROLOL [Concomitant]
     Dosage: 25 MG, QD
  8. LEVOTHYROXINE [Concomitant]
     Dosage: 125 UG, QD
  9. AMLODIPINE [Concomitant]
     Dosage: 2.5 MG, QD
  10. COMBIVENT [Concomitant]
     Dosage: 18/103 UG
  11. FENTANYL [Concomitant]
     Dosage: 100 UG, PER HOUR
  12. IPRATROPIUM/ALBUTEROL [Concomitant]
  13. CLINDAMYCIN [Concomitant]
  14. FENTORA [Concomitant]
     Dosage: 600 UG, Q6H
  15. ADVAIR [Concomitant]
  16. MIRTAZAPINE [Concomitant]
     Dosage: 6000 UG, QD

REACTIONS (11)
  - Transient ischaemic attack [Unknown]
  - Coma [Unknown]
  - Staphylococcal infection [Unknown]
  - Chest pain [Unknown]
  - Back pain [Unknown]
  - Pain [Unknown]
  - Diarrhoea [Unknown]
  - Vomiting [Unknown]
  - Headache [Unknown]
  - Visual impairment [Unknown]
  - Malaise [Unknown]
